FAERS Safety Report 8438524-2 (Version None)
Quarter: 2012Q2

REPORT INFORMATION
  Report Type: 
  Country: None (occurrence: None)
  Receive Date: 20120615
  Receipt Date: 20120608
  Transmission Date: 20120825
  Serious: Yes (Hospitalization)
  Sender: FDA-Public Use
  Company Number: US-BIOGENIDEC-2012BI015915

PATIENT
  Sex: Male

DRUGS (1)
  1. AVONEX [Suspect]
     Indication: MULTIPLE SCLEROSIS
     Route: 030
     Dates: start: 20100101

REACTIONS (9)
  - CONVULSION [None]
  - DIPLOPIA [None]
  - HEADACHE [None]
  - NAUSEA [None]
  - INCONTINENCE [None]
  - VOMITING [None]
  - MULTIPLE SCLEROSIS RELAPSE [None]
  - VERTIGO [None]
  - HYPOAESTHESIA [None]
